FAERS Safety Report 23259819 (Version 1)
Quarter: 2023Q4

REPORT INFORMATION
  Report Type: Spontaneous
  Country: US (occurrence: US)
  Receive Date: 20231204
  Receipt Date: 20231204
  Transmission Date: 20240109
  Serious: Yes (Other)
  Sender: FDA-Public Use
  Company Number: US-PFIZER INC-202300419143

PATIENT
  Age: 83 Year
  Sex: Male

DRUGS (1)
  1. MEKTOVI [Suspect]
     Active Substance: BINIMETINIB
     Dosage: 45 MG, (3 TABLETS OF 15 MG), TWICE A DAY
     Route: 048
     Dates: end: 202311

REACTIONS (7)
  - Hallucination [Unknown]
  - Balance disorder [Unknown]
  - Fall [Unknown]
  - Head injury [Unknown]
  - Diarrhoea [Unknown]
  - Vomiting [Unknown]
  - Chromaturia [Unknown]
